FAERS Safety Report 8956156 (Version 1)
Quarter: 2012Q4

REPORT INFORMATION
  Report Type: 
  Country: US (occurrence: US)
  Receive Date: 20121210
  Receipt Date: 20121210
  Transmission Date: 20130627
  Serious: Yes (Other)
  Sender: FDA-Public Use
  Company Number: US-JNJFOC-20121200527

PATIENT
  Sex: Male
  Weight: 90.72 kg

DRUGS (2)
  1. RISPERDAL [Suspect]
     Indication: HALLUCINATION, AUDITORY
     Route: 048
     Dates: start: 201205, end: 201211
  2. XANAX [Concomitant]
     Dosage: three times daily as needed
     Route: 048
     Dates: start: 201204

REACTIONS (4)
  - Angina pectoris [Unknown]
  - Hallucination, visual [Unknown]
  - Learning disability [Unknown]
  - Vision blurred [Unknown]
